FAERS Safety Report 19036616 (Version 1)
Quarter: 2021Q1

REPORT INFORMATION
  Report Type: Spontaneous
  Country: US (occurrence: US)
  Receive Date: 20210322
  Receipt Date: 20210322
  Transmission Date: 20210420
  Serious: Yes (Other)
  Sender: FDA-Public Use
  Company Number: US-MTPC-MTDA2021-0007255

PATIENT
  Sex: Female

DRUGS (1)
  1. RADICAVA [Suspect]
     Active Substance: EDARAVONE
     Indication: PRODUCT USED FOR UNKNOWN INDICATION
     Dosage: UNK
     Route: 065
     Dates: start: 201712

REACTIONS (6)
  - Dependence on respirator [Unknown]
  - Disease progression [Unknown]
  - Choking [Unknown]
  - Pain [Unknown]
  - Drug ineffective [Unknown]
  - Paralysis [Unknown]

NARRATIVE: CASE EVENT DATE: 201801
